FAERS Safety Report 8193593-2 (Version None)
Quarter: 2012Q1

REPORT INFORMATION
  Report Type: 
  Country: None (occurrence: None)
  Receive Date: 20120308
  Receipt Date: 20120305
  Transmission Date: 20120608
  Serious: Yes (Hospitalization, Other)
  Sender: FDA-Public Use
  Company Number: US-PFIZER INC-2012059118

PATIENT
  Sex: Male
  Weight: 77.1 kg

DRUGS (2)
  1. DILANTIN [Suspect]
     Indication: CONVULSION
     Dosage: 300 MG, 1X/DAY
     Route: 048
     Dates: start: 20090101, end: 20100101
  2. DILANTIN [Suspect]
     Dosage: 200 MG, 2X/DAY
     Route: 048
     Dates: start: 20100101

REACTIONS (6)
  - MUSCLE TIGHTNESS [None]
  - CHEST PAIN [None]
  - HYPOTENSION [None]
  - ANTICONVULSANT DRUG LEVEL DECREASED [None]
  - CHEST DISCOMFORT [None]
  - CONVULSION [None]
